FAERS Safety Report 8119982-X (Version None)
Quarter: 2012Q1

REPORT INFORMATION
  Report Type: 
  Country: None (occurrence: None)
  Receive Date: 20120207
  Receipt Date: 20120206
  Transmission Date: 20120608
  Serious: Yes (Death)
  Sender: FDA-Public Use
  Company Number: GB-ABBOTT-12P-167-0901414-00

PATIENT
  Sex: Female

DRUGS (1)
  1. HUMIRA [Suspect]
     Indication: RHEUMATOID ARTHRITIS
     Route: 058
     Dates: start: 20070215, end: 20070315

REACTIONS (5)
  - VASCULAR DEMENTIA [None]
  - CARDIO-RESPIRATORY ARREST [None]
  - DIABETES MELLITUS INADEQUATE CONTROL [None]
  - RHEUMATOID ARTHRITIS [None]
  - BONE NEOPLASM MALIGNANT [None]
